FAERS Safety Report 14676181 (Version 1)
Quarter: 2018Q1

REPORT INFORMATION
  Report Type: Spontaneous
  Country: TW (occurrence: TW)
  Receive Date: 20180323
  Receipt Date: 20180323
  Transmission Date: 20180509
  Serious: Yes (Hospitalization)
  Sender: FDA-Public Use
  Company Number: PHHY2018TW048535

PATIENT
  Age: 64 Year
  Sex: Female
  Weight: 75.5 kg

DRUGS (1)
  1. TEGRETOL [Suspect]
     Active Substance: CARBAMAZEPINE
     Indication: NEURALGIA
     Dosage: 100 MG, BID
     Route: 048
     Dates: start: 20160329, end: 20160510

REACTIONS (15)
  - Back pain [Unknown]
  - Skin disorder [Unknown]
  - Swelling face [Recovering/Resolving]
  - Rash erythematous [Unknown]
  - Erythema [Recovering/Resolving]
  - Cholecystitis acute [Unknown]
  - Drug reaction with eosinophilia and systemic symptoms [Unknown]
  - Thrombocytopenia [Unknown]
  - Liver function test increased [Recovering/Resolving]
  - Abdominal pain upper [Unknown]
  - Pyrexia [Unknown]
  - Pain [Unknown]
  - Cholangitis [Unknown]
  - Lymphocyte morphology abnormal [Unknown]
  - Rash generalised [Recovering/Resolving]

NARRATIVE: CASE EVENT DATE: 20160511
